FAERS Safety Report 5749279-4 (Version None)
Quarter: 2008Q2

REPORT INFORMATION
  Report Type: 
  Country: None (occurrence: None)
  Receive Date: 20080527
  Receipt Date: 20080520
  Transmission Date: 20081010
  Serious: Yes (Other)
  Sender: FDA-Public Use
  Company Number: US-BAYER-200823625NA

PATIENT
  Age: 39 Year
  Sex: Female
  Weight: 118 kg

DRUGS (3)
  1. MIRENA [Suspect]
     Indication: CONTRACEPTION
     Route: 015
     Dates: start: 20000101
  2. COPPER T [Concomitant]
  3. UNKNOWN DRUG [Concomitant]
     Indication: ECTOPIC PREGNANCY

REACTIONS (6)
  - ABDOMINAL PAIN [None]
  - ECTOPIC PREGNANCY [None]
  - IUD MIGRATION [None]
  - REPRODUCTIVE TRACT DISORDER [None]
  - VAGINAL DISCHARGE [None]
  - VAGINITIS BACTERIAL [None]
